FAERS Safety Report 4840477-0 (Version None)
Quarter: 2005Q4

REPORT INFORMATION
  Report Type: 
  Country: None (occurrence: None)
  Receive Date: 20051130
  Receipt Date: 20050801
  Transmission Date: 20060501
  Serious: Yes (Other)
  Sender: FDA-Public Use
  Company Number: US-BRISTOL-MYERS SQUIBB COMPANY-13058615

PATIENT
  Age: 61 Year
  Sex: Male
  Weight: 93 kg

DRUGS (7)
  1. ERBITUX [Suspect]
     Indication: COLON CANCER
     Route: 042
     Dates: start: 20050711
  2. SYNTHROID [Concomitant]
  3. AVANDIA [Concomitant]
  4. ASCORBIC ACID [Concomitant]
  5. VITAMIN E [Concomitant]
  6. MULTI-VITAMIN [Concomitant]
  7. CAMPTOSAR [Concomitant]

REACTIONS (1)
  - DERMATITIS ACNEIFORM [None]
